FAERS Safety Report 7261689-5 (Version None)
Quarter: 2011Q1

REPORT INFORMATION
  Report Type: 
  Country: None (occurrence: None)
  Receive Date: 20110130
  Receipt Date: 20101025
  Transmission Date: 20110831
  Serious: Yes (Other)
  Sender: FDA-Public Use
  Company Number: US-ABBOTT-10P-163-0680920-00

PATIENT
  Sex: Female
  Weight: 70.824 kg

DRUGS (1)
  1. HUMIRA [Suspect]
     Indication: RHEUMATOID ARTHRITIS
     Dates: start: 20080101

REACTIONS (3)
  - PAIN [None]
  - ARTHRITIS [None]
  - RHEUMATOID ARTHRITIS [None]
